FAERS Safety Report 5222452-X (Version None)
Quarter: 2007Q1

REPORT INFORMATION
  Report Type: 
  Country: None (occurrence: None)
  Receive Date: 20070124
  Receipt Date: 20070116
  Transmission Date: 20070707
  Serious: Yes (Death, Hospitalization)
  Sender: FDA-Public Use
  Company Number: 163-21880-06091207

PATIENT
  Age: 48 Year
  Sex: Female

DRUGS (2)
  1. REVLIMID [Suspect]
     Indication: HODGKIN'S DISEASE
     Dosage: 10 MG, 1 IN 1 D, ORAL
     Route: 048
     Dates: start: 20060405, end: 20060815
  2. REVLIMID [Suspect]
     Indication: MYELODYSPLASTIC SYNDROME
     Dosage: 10 MG, 1 IN 1 D, ORAL
     Route: 048
     Dates: start: 20060405, end: 20060815

REACTIONS (5)
  - DISEASE PROGRESSION [None]
  - DRUG INEFFECTIVE [None]
  - INFECTION [None]
  - MYELODYSPLASTIC SYNDROME [None]
  - PNEUMONIA [None]
